FAERS Safety Report 7634971-7 (Version None)
Quarter: 2011Q3

REPORT INFORMATION
  Report Type: 
  Country: None (occurrence: None)
  Receive Date: 20110726
  Receipt Date: 20110713
  Transmission Date: 20111222
  Serious: Yes (Hospitalization)
  Sender: FDA-Public Use
  Company Number: FR-JNJFOC-20110708148

PATIENT
  Sex: Female

DRUGS (9)
  1. ALDACTONE [Concomitant]
  2. DISOPYRAMIDE PHOSPHATE [Suspect]
     Indication: SUPRAVENTRICULAR TACHYCARDIA
     Route: 048
  3. VASTAREL [Concomitant]
  4. ACETAMINOPHEN AND TRAMADOL HCL [Suspect]
     Indication: BONE PAIN
     Route: 065
     Dates: start: 20110618, end: 20110618
  5. FOSAMAX [Concomitant]
  6. CLONAZEPAM [Concomitant]
  7. PIASCLEDINE [Concomitant]
  8. ALFUZOSIN HCL [Concomitant]
  9. DUSPATALIN [Concomitant]

REACTIONS (2)
  - POTENTIATING DRUG INTERACTION [None]
  - URINARY RETENTION [None]
